FAERS Safety Report 9518773 (Version 1)
Quarter: 2013Q3

REPORT INFORMATION
  Report Type: Spontaneous
  Country: US (occurrence: US)
  Receive Date: 20130912
  Receipt Date: 20130912
  Transmission Date: 20140515
  Serious: No
  Sender: FDA-Public Use
  Company Number: US-MUTUAL PHARMACEUTICAL COMPANY, INC.-CLND20130003

PATIENT
  Age: 65 Year
  Sex: Male
  Weight: 74.46 kg

DRUGS (6)
  1. CLONIDINE HYDROCHLORIDE TABLETS 0.2 MG [Suspect]
     Indication: HYPERTENSION
     Route: 048
     Dates: start: 201302
  2. INSULIN [Concomitant]
     Indication: DIABETES MELLITUS
     Route: 058
  3. EXFORGE [Concomitant]
     Indication: HYPERTENSION
     Route: 048
  4. METOPROLOL [Concomitant]
     Indication: HYPERTENSION
     Route: 048
  5. CLOPIDOGREL [Concomitant]
     Indication: CARDIOVASCULAR EVENT PROPHYLAXIS
     Route: 048
  6. ASPIRIN [Concomitant]
     Indication: CARDIOVASCULAR EVENT PROPHYLAXIS
     Route: 048

REACTIONS (2)
  - Blood pressure increased [Not Recovered/Not Resolved]
  - Drug ineffective [None]
